FAERS Safety Report 9782945 (Version 1)
Quarter: 2013Q4

REPORT INFORMATION
  Report Type: Spontaneous
  Country: US (occurrence: None)
  Receive Date: 20131223
  Receipt Date: 20131223
  Transmission Date: 20140711
  Serious: Yes (Life-Threatening, Hospitalization, Other)
  Sender: FDA-Public Use
  Company Number: EUS-2011-00775

PATIENT
  Age: 3 Year
  Sex: Male

DRUGS (12)
  1. ERWINASE (ASPARAGINASE) [Suspect]
     Indication: ACUTE LYMPHOCYTIC LEUKAEMIA
     Dosage: CYCLE 1 ON 01, 03, 05 AND 07 JUL 2011)
     Route: 030
     Dates: start: 20110701, end: 20110707
  2. DEXAMETHASONE [Concomitant]
  3. BENADRYL [Concomitant]
  4. DASATINIB [Concomitant]
  5. ETOPOSIDE [Concomitant]
  6. HYDROCORTISONE [Concomitant]
  7. ZOFRAN [Concomitant]
  8. IFEX [Concomitant]
  9. ZANTAC [Concomitant]
  10. MESNA [Concomitant]
  11. SEPTRA [Concomitant]
  12. OXYCODONE [Concomitant]

REACTIONS (10)
  - Aspartate aminotransferase increased [None]
  - Platelet count abnormal [None]
  - Clostridial infection [None]
  - Streptococcus test positive [None]
  - Urinary tract infection enterococcal [None]
  - Sepsis [None]
  - Haemoglobin abnormal [None]
  - Hypokalaemia [None]
  - Febrile neutropenia [None]
  - White blood cell count decreased [None]
